FAERS Safety Report 25270891 (Version 1)
Quarter: 2025Q2

REPORT INFORMATION
  Report Type: Spontaneous
  Country: US (occurrence: US)
  Receive Date: 20250506
  Receipt Date: 20250506
  Transmission Date: 20250716
  Serious: Yes (Other)
  Sender: RANBAXY
  Company Number: US-SUN PHARMACEUTICAL INDUSTRIES LTD-2025R1-506022

PATIENT
  Age: 16 Year
  Sex: Male

DRUGS (1)
  1. DEXAMETHASONE [Suspect]
     Active Substance: DEXAMETHASONE
     Indication: Superior vena cava syndrome
     Route: 065

REACTIONS (2)
  - Disseminated intravascular coagulation [Recovering/Resolving]
  - Tumour lysis syndrome [Recovering/Resolving]
